FAERS Safety Report 9178714 (Version 2)
Quarter: 2013Q2

REPORT INFORMATION
  Report Type: Report from Study
  Country: FR (occurrence: FR)
  Receive Date: 20130321
  Receipt Date: 20130531
  Transmission Date: 20140414
  Serious: Yes (Death, Other)
  Sender: FDA-Public Use
  Company Number: FR-ROCHE-1204715

PATIENT
  Sex: 0

DRUGS (1)
  1. BEVACIZUMAB [Suspect]
     Indication: OVARIAN CANCER
     Route: 065

REACTIONS (7)
  - Pulmonary hypertension [Fatal]
  - Hypertension [Unknown]
  - Ventricular dysfunction [Unknown]
  - Gastritis [Unknown]
  - Hypersensitivity [Unknown]
  - Hypertension [Unknown]
  - Proteinuria [Unknown]
